FAERS Safety Report 25207239 (Version 2)
Quarter: 2025Q2

REPORT INFORMATION
  Report Type: Spontaneous
  Country: GB (occurrence: GB)
  Receive Date: 20250417
  Receipt Date: 20250508
  Transmission Date: 20250717
  Serious: Yes (Life-Threatening, Hospitalization, Other)
  Sender: RANBAXY
  Company Number: GB-SUN PHARMACEUTICAL INDUSTRIES LTD-2025RR-503771

PATIENT
  Age: 25 Year
  Sex: Male
  Weight: 86 kg

DRUGS (1)
  1. OLANZAPINE [Suspect]
     Active Substance: OLANZAPINE
     Indication: Schizophrenia
     Route: 065

REACTIONS (3)
  - Hyponatraemia [Recovering/Resolving]
  - Seizure [Unknown]
  - Polydipsia psychogenic [Unknown]

NARRATIVE: CASE EVENT DATE: 20250201
